FAERS Safety Report 11823873 (Version 1)
Quarter: 2015Q4

REPORT INFORMATION
  Report Type: Spontaneous
  Country: US (occurrence: US)
  Receive Date: 20151210
  Receipt Date: 20151210
  Transmission Date: 20160305
  Serious: No
  Sender: FDA-Public Use
  Company Number: US-HORIZON-PRE-0212-2015

PATIENT
  Age: 56 Year
  Sex: Female

DRUGS (3)
  1. RAYOS [Suspect]
     Active Substance: PREDNISONE
     Indication: ARTHRITIS
     Dosage: AT BEDTIME
  2. METHOTREXATE [Concomitant]
     Active Substance: METHOTREXATE
  3. FOLIC ACID. [Concomitant]
     Active Substance: FOLIC ACID

REACTIONS (1)
  - Drug dose omission [Unknown]

NARRATIVE: CASE EVENT DATE: 20151202
